FAERS Safety Report 9028657 (Version 1)
Quarter: 2013Q1

REPORT INFORMATION
  Report Type: Spontaneous
  Country: BR (occurrence: BR)
  Receive Date: 20130124
  Receipt Date: 20130124
  Transmission Date: 20140127
  Serious: Yes (Hospitalization)
  Sender: FDA-Public Use
  Company Number: PHHY2013BR005354

PATIENT
  Sex: Female
  Weight: 56 kg

DRUGS (1)
  1. ONBREZ [Suspect]
     Indication: BRONCHITIS
     Dosage: 150 MG, QD
     Dates: start: 2012

REACTIONS (6)
  - Bronchitis [Recovering/Resolving]
  - Cough [Recovering/Resolving]
  - Weight decreased [Not Recovered/Not Resolved]
  - Pneumonia [Recovered/Resolved]
  - Decreased appetite [Not Recovered/Not Resolved]
  - Off label use [Unknown]
